FAERS Safety Report 19078724 (Version 1)
Quarter: 2021Q1

REPORT INFORMATION
  Report Type: Spontaneous
  Country: None (occurrence: BR)
  Receive Date: 20210331
  Receipt Date: 20210331
  Transmission Date: 20210420
  Serious: Yes (Hospitalization)
  Sender: FDA-Public Use
  Company Number: BR-VALIDUS PHARMACEUTICALS LLC-BR-2021VAL000827

PATIENT
  Sex: Female

DRUGS (10)
  1. TRIMETAZIDINE HYDROCHLORIDE [Suspect]
     Active Substance: TRIMETAZIDINE DIHYDROCHLORIDE
     Indication: PRODUCT USED FOR UNKNOWN INDICATION
  2. CONCOR [Concomitant]
     Active Substance: BISOPROLOL FUMARATE
     Indication: PRODUCT USED FOR UNKNOWN INDICATION
     Dosage: 5 MG
  3. PURAN [Concomitant]
     Active Substance: LEVOTHYROXINE SODIUM
  4. LOSARTAN POTASSIUM. [Suspect]
     Active Substance: LOSARTAN POTASSIUM
     Indication: PRODUCT USED FOR UNKNOWN INDICATION
  5. NORVASC [Concomitant]
     Active Substance: AMLODIPINE BESYLATE
     Indication: PRODUCT USED FOR UNKNOWN INDICATION
     Dosage: 5 MG
  6. LASIX [Suspect]
     Active Substance: FUROSEMIDE
     Indication: PRODUCT USED FOR UNKNOWN INDICATION
     Dosage: 5 DF, QOD; UNKNOWN
  7. ACETYLSALICYLIC ACID [Suspect]
     Active Substance: ASPIRIN
     Indication: PRODUCT USED FOR UNKNOWN INDICATION
     Dosage: 1 DF QD AT LUNCH
  8. LIPITOR [Concomitant]
     Active Substance: ATORVASTATIN CALCIUM
     Indication: PRODUCT USED FOR UNKNOWN INDICATION
     Dosage: 10 MG
  9. APRESOLINA [Concomitant]
     Active Substance: HYDRALAZINE HYDROCHLORIDE
     Indication: PRODUCT USED FOR UNKNOWN INDICATION
     Dosage: 5 MG
  10. DIOVAN [Concomitant]
     Active Substance: VALSARTAN
     Indication: PRODUCT USED FOR UNKNOWN INDICATION
     Dosage: 160 MG

REACTIONS (13)
  - Chest pain [Not Recovered/Not Resolved]
  - Asthenia [Unknown]
  - Thyroid disorder [Unknown]
  - Pulmonary oedema [Unknown]
  - Fatigue [Unknown]
  - Blood pressure abnormal [Unknown]
  - Swelling [Not Recovered/Not Resolved]
  - Infarction [Unknown]
  - Pruritus [Not Recovered/Not Resolved]
  - Heart rate decreased [Unknown]
  - Speech disorder [Unknown]
  - Pollakiuria [Unknown]
  - Acute febrile neutrophilic dermatosis [Not Recovered/Not Resolved]
